FAERS Safety Report 20360682 (Version 1)
Quarter: 2022Q1

REPORT INFORMATION
  Report Type: Spontaneous
  Country: US (occurrence: US)
  Receive Date: 20220121
  Receipt Date: 20220121
  Transmission Date: 20220423
  Serious: No
  Sender: FDA-Public Use
  Company Number: US-SA-SAC20220117000149

PATIENT
  Age: 40 Year
  Sex: Male

DRUGS (1)
  1. DUPIXENT [Suspect]
     Active Substance: DUPILUMAB
     Indication: Dermatitis atopic
     Dosage: 300 MG; QOW
     Route: 058
     Dates: start: 202111

REACTIONS (2)
  - Eye pruritus [Recovered/Resolved]
  - Dry eye [Recovered/Resolved]

NARRATIVE: CASE EVENT DATE: 20211201
